FAERS Safety Report 6769587-8 (Version None)
Quarter: 2010Q2

REPORT INFORMATION
  Report Type: 
  Country: None (occurrence: None)
  Receive Date: 20100608
  Receipt Date: 20100602
  Transmission Date: 20101027
  Serious: Yes (Hospitalization)
  Sender: FDA-Public Use
  Company Number: 2010SP030539

PATIENT
  Age: 87 Year
  Sex: Female
  Weight: 68 kg

DRUGS (2)
  1. BETAMETHASONE SODIUM PHOSPHATE [Suspect]
     Indication: OSTEOARTHRITIS
     Dosage: 1 ML; ; IA
     Route: 014
     Dates: start: 20100430, end: 20100430
  2. NIMESULIDE [Concomitant]

REACTIONS (1)
  - RASH PRURITIC [None]
